FAERS Safety Report 5404148-4 (Version None)
Quarter: 2007Q3

REPORT INFORMATION
  Report Type: 
  Country: None (occurrence: None)
  Receive Date: 20070731
  Receipt Date: 20070713
  Transmission Date: 20080115
  Serious: Yes (Death)
  Sender: FDA-Public Use
  Company Number: 013045

PATIENT
  Age: 57 Year
  Sex: Female
  Weight: 69 kg

DRUGS (2)
  1. VERAPAMIL [Suspect]
     Indication: HYPERTENSION
     Dosage: ORAL
     Route: 048
  2. TRANDOLAPRIL [Suspect]
     Indication: HYPERTENSION
     Dosage: ORAL
     Route: 048

REACTIONS (13)
  - ACCIDENTAL OVERDOSE [None]
  - AORTIC ARTERIOSCLEROSIS [None]
  - ARTERIOSCLEROSIS CORONARY ARTERY [None]
  - CARDIAC HYPERTROPHY [None]
  - CEREBRAL ARTERIOSCLEROSIS [None]
  - DRUG TOXICITY [None]
  - GLOMERULOSCLEROSIS [None]
  - MYOCARDIAL FIBROSIS [None]
  - PULMONARY OEDEMA [None]
  - PYELONEPHRITIS CHRONIC [None]
  - RENAL ARTERIOSCLEROSIS [None]
  - RESTRICTIVE CARDIOMYOPATHY [None]
  - UNRESPONSIVE TO STIMULI [None]
